FAERS Safety Report 14381019 (Version 4)
Quarter: 2019Q1

REPORT INFORMATION
  Report Type: Report from Study
  Country: CA (occurrence: CA)
  Receive Date: 20180112
  Receipt Date: 20190212
  Transmission Date: 20190417
  Serious: Yes (Hospitalization, Other)
  Sender: FDA-Public Use
  Company Number: CA-GLAXOSMITHKLINE-CA2018GSK003996

PATIENT
  Sex: Female

DRUGS (1)
  1. MEPOLIZUMAB [Suspect]
     Active Substance: MEPOLIZUMAB
     Indication: ASTHMA
     Dosage: 100 MG, Z, MONTHLY
     Route: 042
     Dates: start: 20171026

REACTIONS (7)
  - Asthma [Unknown]
  - Deafness unilateral [Unknown]
  - Dyspnoea [Unknown]
  - Cough [Unknown]
  - Blindness unilateral [Unknown]
  - Infection [Unknown]
  - Malaise [Unknown]
